FAERS Safety Report 5884582-9 (Version None)
Quarter: 2008Q3

REPORT INFORMATION
  Report Type: 
  Country: None (occurrence: None)
  Receive Date: 20080915
  Receipt Date: 20080915
  Transmission Date: 20090109
  Serious: Yes (Life-Threatening, Hospitalization, Disabling, Other)
  Sender: FDA-Public Use
  Company Number: None

PATIENT
  Age: 65 Year
  Sex: Male
  Weight: 108.8633 kg

DRUGS (2)
  1. ENBREL [Suspect]
     Indication: ANKYLOSING SPONDYLITIS
     Dosage: 1 INJECTION PER WEEK
     Dates: start: 20050101, end: 20070831
  2. HUMIRA [Suspect]
     Dosage: 1 INJECTION PER WEEK
     Dates: start: 20070831, end: 20080729

REACTIONS (4)
  - BLOOD DISORDER [None]
  - ILL-DEFINED DISORDER [None]
  - INTESTINAL HAEMORRHAGE [None]
  - THROMBOSIS [None]
